FAERS Safety Report 19734871 (Version 3)
Quarter: 2021Q4

REPORT INFORMATION
  Report Type: Report from Study
  Country: US (occurrence: US)
  Receive Date: 20210824
  Receipt Date: 20211111
  Transmission Date: 20220304
  Serious: Yes (Other)
  Sender: FDA-Public Use
  Company Number: US-TAKEDA-US202030043

PATIENT
  Sex: Female

DRUGS (2)
  1. HUMAN IMMUNOGLOBULIN G [Suspect]
     Active Substance: HUMAN IMMUNOGLOBULIN G
     Indication: Hypogammaglobulinaemia
     Dosage: UNK
     Route: 058
  2. MODERNA COVID-19 VACCINE [Suspect]
     Active Substance: CX-024414
     Indication: COVID-19 immunisation
     Dosage: UNK
     Route: 065

REACTIONS (10)
  - Anaphylactic reaction [Unknown]
  - Infusion site pain [Not Recovered/Not Resolved]
  - Illness [Unknown]
  - Sinusitis [Unknown]
  - Nasopharyngitis [Unknown]
  - Infusion related reaction [Unknown]
  - COVID-19 immunisation [Unknown]
  - Feeling abnormal [Unknown]
  - Raynaud^s phenomenon [Unknown]
  - Infusion site bruising [Unknown]
